FAERS Safety Report 6302736-4 (Version None)
Quarter: 2009Q3

REPORT INFORMATION
  Report Type: 
  Country: None (occurrence: None)
  Receive Date: 20090810
  Receipt Date: 20090731
  Transmission Date: 20100115
  Serious: Yes (Hospitalization)
  Sender: FDA-Public Use
  Company Number: JP-ABBOTT-09P-087-0580579-00

PATIENT
  Sex: Female
  Weight: 46 kg

DRUGS (14)
  1. CEFZON CAPSULE [Suspect]
     Indication: URINARY TRACT INFECTION
     Route: 048
     Dates: start: 20090521, end: 20090524
  2. ALEVIATIN [Concomitant]
     Indication: DRUG USE FOR UNKNOWN INDICATION
     Route: 048
  3. MYSTAN [Concomitant]
     Indication: DRUG USE FOR UNKNOWN INDICATION
     Route: 048
  4. EXCEGRAN [Concomitant]
     Indication: DRUG USE FOR UNKNOWN INDICATION
     Route: 048
  5. ANTIBIOTICS [Concomitant]
     Indication: DRUG USE FOR UNKNOWN INDICATION
     Dates: start: 20090501, end: 20090501
  6. THYRADIN S [Concomitant]
     Indication: DRUG USE FOR UNKNOWN INDICATION
     Route: 048
  7. CORTRIL [Concomitant]
     Indication: DRUG USE FOR UNKNOWN INDICATION
     Route: 048
  8. BIO THREE [Concomitant]
     Indication: DRUG USE FOR UNKNOWN INDICATION
  9. MAGMITT [Concomitant]
     Indication: DRUG USE FOR UNKNOWN INDICATION
  10. GASTER [Concomitant]
     Indication: DRUG USE FOR UNKNOWN INDICATION
     Dosage: ORODISPERSIBLE CR TABLET
  11. URSO 250 [Concomitant]
     Indication: DRUG USE FOR UNKNOWN INDICATION
  12. COSPANON [Concomitant]
     Indication: DRUG USE FOR UNKNOWN INDICATION
  13. PONOPHEN [Concomitant]
     Indication: DRUG USE FOR UNKNOWN INDICATION
  14. TAKAPLEX [Concomitant]
     Indication: DRUG USE FOR UNKNOWN INDICATION

REACTIONS (1)
  - CONVULSION [None]
